FAERS Safety Report 4964737-8 (Version None)
Quarter: 2006Q1

REPORT INFORMATION
  Report Type: 
  Country: None (occurrence: None)
  Receive Date: 20060331
  Receipt Date: 20060320
  Transmission Date: 20060701
  Serious: Yes (Hospitalization)
  Sender: FDA-Public Use
  Company Number: DE200603005462

PATIENT
  Age: 72 Year
  Sex: Female

DRUGS (4)
  1. ZYPREXA [Suspect]
     Indication: BIPOLAR I DISORDER
     Dosage: 5 MG, DAILY (1/D), ORAL
     Route: 048
     Dates: start: 20060124, end: 20060131
  2. CITALOPRAM HYDROBROMIDE [Concomitant]
  3. DEPAKENE [Concomitant]
  4. ESIDRIX                 (HYDROCHLOROCHIAZIDE) [Concomitant]

REACTIONS (8)
  - BLOOD GLUCOSE INCREASED [None]
  - BLOOD POTASSIUM DECREASED [None]
  - C-REACTIVE PROTEIN [None]
  - COMMUNICATION DISORDER [None]
  - HYPONATRAEMIA [None]
  - LETHARGY [None]
  - PNEUMONIA [None]
  - STUPOR [None]
